FAERS Safety Report 17245350 (Version 2)
Quarter: 2020Q1

REPORT INFORMATION
  Report Type: Report from Study
  Country: NL (occurrence: NL)
  Receive Date: 20200108
  Receipt Date: 20200122
  Transmission Date: 20200409
  Serious: Yes (Hospitalization)
  Sender: FDA-Public Use
  Company Number: NL-ROCHE-2512605

PATIENT
  Age: 58 Year
  Sex: Female

DRUGS (4)
  1. TRASTUZUMAB. [Suspect]
     Active Substance: TRASTUZUMAB
     Indication: HER-2 POSITIVE BREAST CANCER
     Dosage: DAY 1 EVERY 3 WEEKS (6 MG/KG ADMINISTERED INTRAVENOUSLY ON DAY 1 (LOADING DOSE 8 MG/KG) OR TRASTUZUM
     Route: 041
     Dates: start: 20190930
  2. CARBOPLATIN. [Suspect]
     Active Substance: CARBOPLATIN
     Indication: HER-2 POSITIVE BREAST CANCER
     Dosage: 560 AUC ON DAY 1, DAY 8, EVERY 3 WEEKS (6MG-ML/MIN ADMINISTERED INTRAVENOUSLY ON DAY 1 AS PER PROTOC
     Route: 042
     Dates: start: 20190930
  3. PACLITAXEL. [Suspect]
     Active Substance: PACLITAXEL
     Indication: HER-2 POSITIVE BREAST CANCER
     Dosage: DAY 1, DAY 8 EVERY 3 WEEKS (80 MG/M2 ADMINISTERED INTRAVENOUSLY ON DAY 1 AND DAY 8 AS PER PROTOCOL).
     Route: 042
     Dates: start: 20190930
  4. PERTUZUMAB. [Suspect]
     Active Substance: PERTUZUMAB
     Indication: HER-2 POSITIVE BREAST CANCER
     Dosage: DAY 1 EVERY 3 WEEKS (420 MG ADMINISTERED INTRAVENOUSLY ON DAY 1 (LOADING DOSE 840 MG AS PER PROTOCOL
     Route: 042
     Dates: start: 20190930

REACTIONS (1)
  - Pneumonia [Recovered/Resolved]

NARRATIVE: CASE EVENT DATE: 20191227
